FAERS Safety Report 5083726-9 (Version None)
Quarter: 2006Q3

REPORT INFORMATION
  Report Type: 
  Country: None (occurrence: None)
  Receive Date: 20060818
  Receipt Date: 20060806
  Transmission Date: 20061208
  Serious: Yes (Other)
  Sender: FDA-Public Use
  Company Number: US-ROCHE-458584

PATIENT
  Sex: Male

DRUGS (4)
  1. PEGASYS [Suspect]
     Indication: HEPATITIS C
     Route: 065
     Dates: start: 20060624
  2. RIBAVIRIN [Suspect]
     Indication: HEPATITIS C
     Route: 048
     Dates: start: 20060624
  3. ALLOPURINOL [Concomitant]
     Dosage: DOSAGE REGIMEN REPORTED AS: 100 MG/ UNK.
     Route: 048
  4. AMBIEN [Concomitant]
     Route: 048

REACTIONS (5)
  - ANOREXIA [None]
  - BLOOD PRESSURE INCREASED [None]
  - EARLY SATIETY [None]
  - PYREXIA [None]
  - RENAL CELL CARCINOMA STAGE UNSPECIFIED [None]
